FAERS Safety Report 6139208-6 (Version None)
Quarter: 2009Q2

REPORT INFORMATION
  Report Type: 
  Country: None (occurrence: None)
  Receive Date: 20090401
  Receipt Date: 20090327
  Transmission Date: 20091009
  Serious: Yes (Hospitalization, Disabling)
  Sender: FDA-Public Use
  Company Number: JP-JNJFOC-20090101534

PATIENT
  Sex: Male
  Weight: 41 kg

DRUGS (4)
  1. ITRIZOLE [Suspect]
     Route: 041
  2. ITRIZOLE [Suspect]
     Indication: ASPERGILLOSIS
     Route: 041
  3. ITRIZOLE [Suspect]
     Indication: BRONCHOPULMONARY ASPERGILLOSIS
     Route: 048
  4. SULBACTAM/AMPICILLIN [Concomitant]
     Indication: ANTI-INFECTIVE THERAPY

REACTIONS (2)
  - CARDIAC FAILURE [None]
  - INTERSTITIAL LUNG DISEASE [None]
